FAERS Safety Report 5135251-4 (Version None)
Quarter: 2006Q4

REPORT INFORMATION
  Report Type: 
  Country: None (occurrence: None)
  Receive Date: 20061026
  Receipt Date: 20060904
  Transmission Date: 20070319
  Serious: Yes (Hospitalization)
  Sender: FDA-Public Use
  Company Number: DEWYE846204SEP06

PATIENT
  Sex: Female

DRUGS (5)
  1. ENBREL [Suspect]
     Indication: RHEUMATOID ARTHRITIS
     Route: 058
     Dates: start: 19990801
  2. BISOPROLOL FUMARATE [Concomitant]
  3. OXYCODONE HCL [Concomitant]
  4. PREDNISOLONE [Concomitant]
  5. MARCUMAR [Concomitant]

REACTIONS (7)
  - ATRIAL FIBRILLATION [None]
  - BLOOD PRESSURE INCREASED [None]
  - DIABETES MELLITUS NON-INSULIN-DEPENDENT [None]
  - HEART RATE INCREASED [None]
  - JOINT SWELLING [None]
  - MUSCULOSKELETAL PAIN [None]
  - RHEUMATOID NODULE [None]
